FAERS Safety Report 8331550 (Version 3)
Quarter: 2012Q4

REPORT INFORMATION
  Report Type: 
  Country: GB (occurrence: GB)
  Receive Date: 20120111
  Receipt Date: 20120919
  Transmission Date: 20130627
  Serious: Yes (Death)
  Sender: FDA-Public Use
  Company Number: GB-B.I. PHARMACEUTICALS,INC./RIDGEFIELD-2012-UK-00024UK

PATIENT
  Sex: Female

DRUGS (3)
  1. PRADAXA [Suspect]
     Indication: ATRIAL FIBRILLATION
  2. PROPAFINONE [Concomitant]
     Dosage: 150 mg
     Route: 048
     Dates: start: 20111020
  3. NEBIVOLOL [Concomitant]

REACTIONS (1)
  - Haemorrhage intracranial [Fatal]
